FAERS Safety Report 6946108-8 (Version None)
Quarter: 2010Q3

REPORT INFORMATION
  Report Type: 
  Country: None (occurrence: None)
  Receive Date: 20100827
  Receipt Date: 20100819
  Transmission Date: 20110219
  Serious: Yes (Hospitalization)
  Sender: FDA-Public Use
  Company Number: FR-ABBOTT-10P-056-0665267-00

PATIENT
  Sex: Female

DRUGS (5)
  1. KALETRA [Suspect]
     Indication: HIV INFECTION
     Route: 048
     Dates: start: 20100429, end: 20100628
  2. TRUVADA [Suspect]
     Indication: HIV INFECTION
     Route: 048
     Dates: start: 20100429, end: 20100628
  3. BACTRIM [Suspect]
     Indication: PRODUCT USED FOR UNKNOWN INDICATION
     Route: 048
     Dates: start: 20100419, end: 20100628
  4. IMOVANE [Suspect]
     Indication: PRODUCT USED FOR UNKNOWN INDICATION
     Dosage: DAILY DOSE: 3.25MG AT NEED
     Route: 048
     Dates: start: 20091101
  5. IBUPROFEN TABLETS [Suspect]
     Indication: PRODUCT USED FOR UNKNOWN INDICATION
     Dosage: AT NEED.
     Dates: start: 20091101, end: 20100628

REACTIONS (11)
  - DIARRHOEA [None]
  - HEADACHE [None]
  - HYPERTENSION [None]
  - HYPOALBUMINAEMIA [None]
  - HYPOPHOSPHATAEMIA [None]
  - HYPOPROTEINAEMIA [None]
  - NAUSEA [None]
  - OEDEMA PERIPHERAL [None]
  - RENAL TUBULAR NECROSIS [None]
  - VOMITING [None]
  - WEIGHT INCREASED [None]
